FAERS Safety Report 8991428 (Version 2)
Quarter: 2013Q2

REPORT INFORMATION
  Report Type: Spontaneous
  Country: JP (occurrence: JP)
  Receive Date: 20121228
  Receipt Date: 20130510
  Transmission Date: 20140414
  Serious: Yes (Congenital Anomaly, Other)
  Sender: FDA-Public Use
  Company Number: JP-009507513-1212JPN010158

PATIENT
  Age: 91 Year
  Sex: Female

DRUGS (2)
  1. JANUVIA TABLETS 50MG [Suspect]
     Indication: DIABETES MELLITUS
     Dosage: 50 MG, QD
     Route: 048
     Dates: start: 20120419, end: 20121105
  2. JANUVIA TABLETS 50MG [Suspect]
     Dosage: 50 MG, QD
     Route: 048

REACTIONS (8)
  - Jaundice cholestatic [Recovered/Resolved]
  - Hepatic function abnormal [Recovered/Resolved]
  - Acute myocardial infarction [Unknown]
  - Pneumonia [Unknown]
  - Femoral neck fracture [Unknown]
  - Vomiting [Unknown]
  - Aphagia [Unknown]
  - Hypoglycaemia [Unknown]
